FAERS Safety Report 17731377 (Version 1)
Quarter: 2020Q2

REPORT INFORMATION
  Report Type: Report from Study
  Country: CN (occurrence: CN)
  Receive Date: 20200430
  Receipt Date: 20200430
  Transmission Date: 20200714
  Serious: Yes (Other)
  Sender: FDA-Public Use
  Company Number: CN-ROCHE-2592001

PATIENT

DRUGS (5)
  1. CALCIUM FOLINATE [Suspect]
     Active Substance: LEUCOVORIN CALCIUM
     Route: 041
  2. OXALIPLATIN. [Suspect]
     Active Substance: OXALIPLATIN
     Route: 041
  3. 5-FLUOROURACIL [FLUOROURACIL] [Suspect]
     Active Substance: FLUOROURACIL
     Dosage: VIA CONTINUOUS PUMP FOR 24 HRS ON DAY 1
     Route: 065
  4. DOCETAXEL. [Suspect]
     Active Substance: DOCETAXEL
     Route: 041
  5. TRASTUZUMAB. [Suspect]
     Active Substance: TRASTUZUMAB
     Dosage: 6 MG/KG IN THE SECOND ON DAY 1, REPEATED FOR 3 WEEKS (TOTAL 3 CYCLES)
     Route: 041

REACTIONS (10)
  - Thrombocytopenia [Unknown]
  - Vomiting [Unknown]
  - Anaphylactic reaction [Unknown]
  - Diarrhoea [Unknown]
  - Mucosal inflammation [Unknown]
  - Anaemia [Unknown]
  - Lethargy [Unknown]
  - Agranulocytosis [Unknown]
  - Neurotoxicity [Unknown]
  - Nausea [Unknown]
